FAERS Safety Report 26196768 (Version 1)
Quarter: 2025Q4

REPORT INFORMATION
  Report Type: Spontaneous
  Country: US (occurrence: US)
  Receive Date: 20251224
  Receipt Date: 20251224
  Transmission Date: 20260118
  Serious: No
  Sender: GLENMARK
  Company Number: US-GLENMARK PHARMACEUTICALS-2025GMK100143

PATIENT

DRUGS (4)
  1. OMEPRAZOLE [Suspect]
     Active Substance: OMEPRAZOLE
     Indication: Gastric ulcer
     Dosage: 1 DOSAGE FORM, QD
     Route: 048
     Dates: start: 202412
  2. OMEPRAZOLE [Suspect]
     Active Substance: OMEPRAZOLE
     Indication: Abdominal distension
  3. OXYCODONE [Concomitant]
     Active Substance: OXYCODONE
     Indication: Fibromyalgia
     Dosage: UNK
     Route: 065
  4. LEVOTHYROXINE [Concomitant]
     Active Substance: LEVOTHYROXINE
     Indication: Hyperthyroidism
     Dosage: UNK
     Route: 065
     Dates: start: 2017

REACTIONS (1)
  - Adverse event [Recovering/Resolving]

NARRATIVE: CASE EVENT DATE: 20241201
